FAERS Safety Report 7513554-3 (Version None)
Quarter: 2011Q2

REPORT INFORMATION
  Report Type: 
  Country: None (occurrence: None)
  Receive Date: 20110531
  Receipt Date: 20110511
  Transmission Date: 20111010
  Serious: Yes (Hospitalization)
  Sender: FDA-Public Use
  Company Number: US-BAYER-201037553NA

PATIENT
  Age: 35 Year
  Sex: Female
  Weight: 123 kg

DRUGS (27)
  1. YASMIN [Suspect]
     Indication: ACNE
     Dosage: UNK
     Dates: end: 20040725
  2. CIPRO [Concomitant]
     Dosage: 750 MG, BID
     Route: 048
     Dates: start: 20040708
  3. FLAGYL [Concomitant]
     Dosage: 500 MG, QID
     Route: 048
     Dates: start: 20040101
  4. IBUPROFEN [Concomitant]
     Dosage: 600 MG, UNK
     Route: 048
     Dates: start: 20040101
  5. WELLBUTRIN XL [Concomitant]
     Dosage: 150 MG, UNK
     Route: 048
     Dates: start: 20040301
  6. PREVACID [Concomitant]
     Dosage: UNK UNK, BID
  7. LEVOXYL [Concomitant]
     Dosage: 150 MG, QD
     Route: 048
     Dates: start: 20000201
  8. PAXIL CR [Concomitant]
     Dosage: 250 MG, UNK
     Route: 048
     Dates: start: 20040101
  9. ZYRTEC [Concomitant]
     Dosage: 10 MG, QD
     Route: 048
     Dates: start: 20000301
  10. IMITREX [Concomitant]
     Dosage: 50 MG, PRN
     Route: 048
     Dates: start: 20040101
  11. FAMOTIDINE [Concomitant]
     Dosage: 20 MG, UNK
     Route: 048
     Dates: start: 20040601
  12. CLINDAMYCIN [Concomitant]
     Dosage: 15 MG, UNK
     Route: 048
     Dates: start: 20040526
  13. PHENERGAN HCL [Concomitant]
     Dosage: UNK
     Route: 048
     Dates: start: 20040101
  14. MAALOX [Concomitant]
     Dosage: UNK
     Route: 048
     Dates: start: 20040101
  15. CLONAZEPAM [Concomitant]
     Indication: ANXIETY
     Dosage: 0.5 MG, BID
     Route: 048
     Dates: start: 20040601
  16. ASPIRIN [Concomitant]
     Dosage: UNK UNK, QD
     Route: 048
     Dates: start: 20040101
  17. DILAUDID [Concomitant]
     Dosage: UNK
     Route: 048
     Dates: start: 20040101
  18. ZOFRAN [Concomitant]
     Dosage: UNK
     Route: 048
     Dates: start: 20040101
  19. PERCOCET [Concomitant]
     Dosage: 5MG/300MG/4DAYS
     Route: 048
     Dates: start: 20040707
  20. EFFEXOR XR [Concomitant]
     Dosage: 75 MG, UNK
     Route: 048
     Dates: start: 20030301
  21. DYAZIDE [Concomitant]
     Dosage: 37.5/25, QD
     Route: 048
     Dates: start: 20040401
  22. MECLIZINE [Concomitant]
     Dosage: 25 MG, UNK
     Route: 048
     Dates: start: 20040601
  23. PROVERA [Concomitant]
     Dosage: 10 MG, UNK
     Route: 048
     Dates: start: 20010501
  24. LAMICTAL [Concomitant]
     Dosage: 200 MG, HS
     Route: 048
     Dates: start: 20040201
  25. ZOLOFT [Concomitant]
     Dosage: 200 MG, HS
     Route: 048
     Dates: start: 20040601
  26. MYLANTA AR [Concomitant]
     Dosage: UNK
     Route: 048
     Dates: start: 20040101
  27. LORAZEPAM [Concomitant]
     Dosage: 0.5 MG, UNK
     Route: 048
     Dates: start: 20030701

REACTIONS (7)
  - ISCHAEMIA [None]
  - THROMBOSIS [None]
  - DEPRESSION [None]
  - MESENTERIC VEIN THROMBOSIS [None]
  - ABDOMINAL PAIN [None]
  - PANCREATITIS ACUTE [None]
  - PORTAL VEIN THROMBOSIS [None]
